FAERS Safety Report 13641704 (Version 1)
Quarter: 2017Q2

REPORT INFORMATION
  Report Type: Spontaneous
  Country: US (occurrence: US)
  Receive Date: 20170608
  Receipt Date: 20170608
  Transmission Date: 20170830
  Serious: Yes (Other)
  Sender: FDA-Public Use
  Company Number: None

PATIENT
  Age: 38 Year
  Sex: Female

DRUGS (1)
  1. LEUPROLIDE [Suspect]
     Active Substance: LEUPROLIDE

REACTIONS (3)
  - Product compounding quality issue [None]
  - Amenorrhoea [None]
  - Legal problem [None]

NARRATIVE: CASE EVENT DATE: 20170417
